FAERS Safety Report 10068598 (Version 3)
Quarter: 2014Q2

REPORT INFORMATION
  Report Type: Spontaneous
  Country: US (occurrence: US)
  Receive Date: 20140409
  Receipt Date: 20140609
  Transmission Date: 20141212
  Serious: Yes (Hospitalization)
  Sender: FDA-Public Use
  Company Number: US-GLAXOSMITHKLINE-A1067694A

PATIENT
  Age: 54 Year
  Sex: Female

DRUGS (9)
  1. VENTOLIN [Suspect]
     Indication: DYSPNOEA
     Dosage: 2PUFF AS REQUIRED
     Route: 055
     Dates: start: 2010
  2. ALBUTEROL [Suspect]
     Indication: DYSPNOEA
     Dates: start: 2009, end: 2010
  3. ADVAIR HFA [Suspect]
     Indication: CHRONIC OBSTRUCTIVE PULMONARY DISEASE
     Dosage: 1PUFF TWICE PER DAY
     Route: 055
     Dates: start: 2010
  4. LOTION [Suspect]
  5. SPIRIVA [Suspect]
     Indication: DYSPNOEA
     Dates: start: 2010
  6. FISH OIL [Concomitant]
  7. ASPIRIN [Concomitant]
  8. TYLENOL PM [Concomitant]
  9. TRILIPIX [Concomitant]

REACTIONS (10)
  - Dyspnoea [Not Recovered/Not Resolved]
  - Rash [Recovered/Resolved]
  - Dry skin [Not Recovered/Not Resolved]
  - Oxygen saturation decreased [Not Recovered/Not Resolved]
  - Nasopharyngitis [Unknown]
  - Hypersensitivity [Unknown]
  - Pruritus [Unknown]
  - Rash [None]
  - Rash [None]
  - Skin exfoliation [None]
